FAERS Safety Report 26023375 (Version 1)
Quarter: 2025Q4

REPORT INFORMATION
  Report Type: Spontaneous
  Country: GB (occurrence: None)
  Receive Date: 20251110
  Receipt Date: 20251110
  Transmission Date: 20260118
  Serious: Yes (Other)
  Sender: ORGANON
  Company Number: None

PATIENT
  Age: 39 Year
  Sex: Female
  Weight: 38 kg

DRUGS (1)
  1. ALENDRONIC ACID [Suspect]
     Active Substance: ALENDRONIC ACID
     Indication: Adverse drug reaction
     Dosage: ONE TABLET, 6 AM ONCE WEEKLY
     Dates: start: 20240722, end: 20250101

REACTIONS (1)
  - Ear injury [Recovered/Resolved with Sequelae]

NARRATIVE: CASE EVENT DATE: 20240731
